FAERS Safety Report 6977943-8 (Version None)
Quarter: 2010Q3

REPORT INFORMATION
  Report Type: 
  Country: None (occurrence: None)
  Receive Date: 20100913
  Receipt Date: 20100901
  Transmission Date: 20110219
  Serious: Yes (Other)
  Sender: FDA-Public Use
  Company Number: CH-PFIZER INC-2009308307

PATIENT
  Age: 33 Year
  Sex: Female

DRUGS (1)
  1. CYTOTEC [Suspect]
     Indication: ABORTION INDUCED
     Dosage: 400 UG, UNK
     Dates: start: 20091104, end: 20091104

REACTIONS (2)
  - ABORTION MISSED [None]
  - DRUG INEFFECTIVE FOR UNAPPROVED INDICATION [None]
